FAERS Safety Report 8423327-5 (Version None)
Quarter: 2012Q2

REPORT INFORMATION
  Report Type: 
  Country: None (occurrence: None)
  Receive Date: 20120608
  Receipt Date: 20120607
  Transmission Date: 20120825
  Serious: Yes (Other)
  Sender: FDA-Public Use
  Company Number: US-PFIZER INC-2012137600

PATIENT
  Sex: Female
  Weight: 43 kg

DRUGS (11)
  1. LYRICA [Concomitant]
     Dosage: UNK
  2. CYMBALTA [Concomitant]
     Dosage: UNK
  3. RANITIDINE [Concomitant]
     Dosage: UNK
  4. DITROPAN [Concomitant]
     Dosage: UNK
  5. CHANTIX [Suspect]
     Indication: SMOKING CESSATION THERAPY
     Dosage: 0.5 MG, 1X/DAY
     Route: 048
  6. COLACE [Concomitant]
     Dosage: UNK
  7. KLONOPIN [Concomitant]
     Dosage: UNK
  8. NEXIUM [Concomitant]
     Dosage: UNK
  9. VICODIN [Concomitant]
     Dosage: UNK
  10. ZOCOR [Concomitant]
     Dosage: UNK
  11. CHANTIX [Suspect]
     Dosage: UNK
     Route: 048

REACTIONS (4)
  - DRUG INEFFECTIVE [None]
  - APPENDICITIS PERFORATED [None]
  - BLOOD CHOLESTEROL INCREASED [None]
  - WEIGHT DECREASED [None]
